FAERS Safety Report 15686218 (Version 1)
Quarter: 2018Q4

REPORT INFORMATION
  Report Type: Spontaneous
  Country: BE (occurrence: BE)
  Receive Date: 20181204
  Receipt Date: 20181204
  Transmission Date: 20190205
  Serious: Yes (Other)
  Sender: FDA-Public Use
  Company Number: BE-TEVA-2018-BE-982752

PATIENT
  Sex: Male

DRUGS (1)
  1. MOXIFLOXACIN. [Suspect]
     Active Substance: MOXIFLOXACIN
     Indication: ERYSIPELAS
     Dosage: 400 MILLIGRAM DAILY; FOR 5-10 DAYS
     Route: 048

REACTIONS (1)
  - Iris transillumination defect [Unknown]
